FAERS Safety Report 17631859 (Version 1)
Quarter: 2020Q2

REPORT INFORMATION
  Report Type: Spontaneous
  Country: US (occurrence: US)
  Receive Date: 20200406
  Receipt Date: 20200406
  Transmission Date: 20200713
  Serious: Yes (Other)
  Sender: FDA-Public Use
  Company Number: US-BECTON DICKINSON-2020BDN00114

PATIENT
  Sex: Female

DRUGS (4)
  1. CHLORAPREP [Suspect]
     Active Substance: CHLORHEXIDINE GLUCONATE\ISOPROPYL ALCOHOL
     Indication: INFECTION PROPHYLAXIS
     Dosage: UNK
     Route: 061
     Dates: start: 20200225, end: 20200225
  2. CHLORAPREP WITH TINT [Suspect]
     Active Substance: CHLORHEXIDINE GLUCONATE\ISOPROPYL ALCOHOL
     Indication: INFECTION PROPHYLAXIS
     Dosage: UNK
     Route: 061
     Dates: start: 20200225, end: 20200225
  3. DOT PPICC FT MAX 5FR (DEVICE) [Suspect]
     Active Substance: DEVICE
  4. LIDOCAINE. [Suspect]
     Active Substance: LIDOCAINE
     Dosage: 5 ML

REACTIONS (3)
  - Complication of device insertion [Recovered/Resolved]
  - Foreign body [Recovered/Resolved]
  - Device physical property issue [Recovered/Resolved]

NARRATIVE: CASE EVENT DATE: 20200225
